FAERS Safety Report 8809250 (Version 1)
Quarter: 2012Q4

REPORT INFORMATION
  Report Type: 
  Country: US (occurrence: US)
  Receive Date: 20120926
  Receipt Date: 20120926
  Transmission Date: 20130627
  Serious: Yes (Hospitalization)
  Sender: FDA-Public Use
  Company Number: US-TEVA-359308USA

PATIENT
  Age: 57 Year
  Sex: Female

DRUGS (1)
  1. ACTIQ [Suspect]
     Route: 048

REACTIONS (2)
  - Back injury [Unknown]
  - Brain injury [Unknown]
